FAERS Safety Report 6661200-3 (Version None)
Quarter: 2010Q1

REPORT INFORMATION
  Report Type: 
  Country: None (occurrence: None)
  Receive Date: 20100331
  Receipt Date: 20100326
  Transmission Date: 20100710
  Serious: Yes (Other)
  Sender: FDA-Public Use
  Company Number: D0067003A

PATIENT
  Sex: Female

DRUGS (2)
  1. ATMADISC [Suspect]
     Dosage: 300MCG UNKNOWN
     Route: 055
     Dates: start: 20100323, end: 20100324
  2. LEVOTHYROXINE SODIUM [Concomitant]
     Route: 048

REACTIONS (4)
  - CHEST PAIN [None]
  - DYSPNOEA [None]
  - EXPIRED DRUG ADMINISTERED [None]
  - VOMITING [None]
